FAERS Safety Report 20843861 (Version 1)
Quarter: 2022Q2

REPORT INFORMATION
  Report Type: Report from Study
  Country: CA (occurrence: CA)
  Receive Date: 20220518
  Receipt Date: 20220518
  Transmission Date: 20220720
  Serious: Yes (Hospitalization)
  Sender: FDA-Public Use
  Company Number: CA-BIOGEN-2019BI00733076

PATIENT
  Sex: Female

DRUGS (4)
  1. SPINRAZA [Suspect]
     Active Substance: NUSINERSEN
     Indication: Spinal muscular atrophy
     Dosage: FIRST 3 LOADING DOSES
     Route: 065
     Dates: start: 20170227
  2. SPINRAZA [Suspect]
     Active Substance: NUSINERSEN
     Dosage: 4TH LOADING DOSE ADMINISTERED 30 DAYS AFTER 3RD DOSE.
     Route: 065
  3. SPINRAZA [Suspect]
     Active Substance: NUSINERSEN
     Dosage: MAINTENANCE DOSES
     Route: 065
  4. SPINRAZA [Suspect]
     Active Substance: NUSINERSEN
     Dosage: DAY 0,14,28,58 AND EVERY 4 MONTHS THEREAFTER
     Route: 065
     Dates: start: 20170712

REACTIONS (4)
  - Pneumonia [Recovered/Resolved]
  - Nasopharyngitis [Unknown]
  - Asthenia [Unknown]
  - Fatigue [Unknown]
